FAERS Safety Report 6781081-7 (Version None)
Quarter: 2010Q2

REPORT INFORMATION
  Report Type: 
  Country: None (occurrence: None)
  Receive Date: 20100617
  Receipt Date: 20100617
  Transmission Date: 20101027
  Serious: Yes (Hospitalization)
  Sender: FDA-Public Use
  Company Number: None

PATIENT
  Sex: Female
  Weight: 49.2 kg

DRUGS (3)
  1. AZACITIDINE [Suspect]
     Indication: ACUTE MYELOID LEUKAEMIA
     Dosage: AZACITIDINE 75 MG/M2 QD IV
     Route: 042
  2. REVLIMID [Suspect]
     Dosage: REVLEMID 50 MG QD PO
     Route: 048
  3. PLEASE SEE 17 PAGE ATTACHMENT [Concomitant]

REACTIONS (7)
  - DIARRHOEA [None]
  - DIARRHOEA HAEMORRHAGIC [None]
  - DIARRHOEA INFECTIOUS [None]
  - FATIGUE [None]
  - HAEMORRHAGE [None]
  - HYPOTENSION [None]
  - HYPOVOLAEMIA [None]
